FAERS Safety Report 4913389-1 (Version None)
Quarter: 2006Q1

REPORT INFORMATION
  Report Type: 
  Country: None (occurrence: None)
  Receive Date: 20060210
  Receipt Date: 20060202
  Transmission Date: 20060701
  Serious: No
  Sender: FDA-Public Use
  Company Number: 06H-143-0304927-00

PATIENT

DRUGS (3)
  1. VANCOMYCIN HCL [Suspect]
     Indication: SKIN INFECTION
     Dosage: 1 GM, TWICE A DAY, INTRAVENOUS
     Route: 042
  2. AZTREONAM (AZTREONAM) [Suspect]
     Indication: SKIN INFECTION
     Dosage: 2 GM, TWICE A DAY, INTRAVENOUS
     Route: 042
  3. 0.9% SODIUM CHLORIDE (SODIUM CHLORIDE) [Concomitant]

REACTIONS (1)
  - CELLULITIS [None]
